FAERS Safety Report 13566509 (Version 2)
Quarter: 2017Q2

REPORT INFORMATION
  Report Type: Report from Study
  Country: US (occurrence: US)
  Receive Date: 20170522
  Receipt Date: 20170602
  Transmission Date: 20170830
  Serious: Yes (Hospitalization)
  Sender: FDA-Public Use
  Company Number: PHEH2017US014783

PATIENT
  Age: 28 Year
  Sex: Female
  Weight: 90.7 kg

DRUGS (2)
  1. GILENYA [Suspect]
     Active Substance: FINGOLIMOD HYDROCHLORIDE
     Dosage: 0.5 MG, QOD
     Route: 048
     Dates: start: 20170515, end: 2017
  2. GILENYA [Suspect]
     Active Substance: FINGOLIMOD HYDROCHLORIDE
     Indication: MULTIPLE SCLEROSIS
     Dosage: 0.5 MG, QD
     Route: 048
     Dates: start: 20170228

REACTIONS (6)
  - Dizziness [Unknown]
  - Incoherent [Unknown]
  - Prescribed underdose [Unknown]
  - Multiple sclerosis relapse [Unknown]
  - Headache [Unknown]
  - Mental impairment [Unknown]

NARRATIVE: CASE EVENT DATE: 201705
